FAERS Safety Report 25724237 (Version 2)
Quarter: 2025Q3

REPORT INFORMATION
  Report Type: Spontaneous
  Country: US (occurrence: US)
  Receive Date: 20250826
  Receipt Date: 20250909
  Transmission Date: 20251020
  Serious: Yes (Other)
  Sender: TEVA
  Company Number: US-TEVA-VS-3364502

PATIENT

DRUGS (2)
  1. TERIPARATIDE [Suspect]
     Active Substance: TERIPARATIDE
     Indication: Osteopenia
     Route: 065
  2. DEVICE [Suspect]
     Active Substance: DEVICE

REACTIONS (1)
  - Embolism venous [Unknown]
